FAERS Safety Report 23718267 (Version 1)
Quarter: 2024Q2

REPORT INFORMATION
  Report Type: Spontaneous
  Country: US (occurrence: US)
  Receive Date: 20240408
  Receipt Date: 20240408
  Transmission Date: 20240716
  Serious: No
  Sender: FDA-Public Use
  Company Number: US-PFIZER INC-202400079190

PATIENT
  Age: 15 Year
  Sex: Male

DRUGS (1)
  1. OXBRYTA [Suspect]
     Active Substance: VOXELOTOR
     Dosage: 300 MG, 3 TABLETS, ONCE DAILY, ORALLY
     Route: 048
     Dates: start: 20230308

REACTIONS (2)
  - Illness [Unknown]
  - Off label use [Unknown]
